FAERS Safety Report 24320434 (Version 1)
Quarter: 2024Q3

REPORT INFORMATION
  Report Type: Spontaneous
  Country: US (occurrence: US)
  Receive Date: 20240915
  Receipt Date: 20240915
  Transmission Date: 20241016
  Serious: Yes (Death)
  Sender: GE HEALTHCARE
  Company Number: US-GE HEALTHCARE-2024CSU010263

PATIENT
  Age: 62 Year
  Sex: Male

DRUGS (1)
  1. OPTISON [Suspect]
     Active Substance: HUMAN ALBUMIN MICROSPHERES\PERFLUTREN
     Indication: Echocardiogram
     Dosage: UNK UNK, TOTAL
     Route: 065
     Dates: start: 20240904, end: 20240904

REACTIONS (1)
  - Cardiac arrest [Fatal]

NARRATIVE: CASE EVENT DATE: 20240904
